FAERS Safety Report 15337062 (Version 1)
Quarter: 2018Q3

REPORT INFORMATION
  Report Type: Spontaneous
  Country: CA (occurrence: CA)
  Receive Date: 20180831
  Receipt Date: 20180831
  Transmission Date: 20181010
  Serious: Yes (Other)
  Sender: FDA-Public Use
  Company Number: CA-CONCORDIA PHARMACEUTICALS INC.-GSH201808-003135

PATIENT
  Age: 72 Year
  Sex: Female

DRUGS (3)
  1. ADALIMUMAB [Concomitant]
     Active Substance: ADALIMUMAB
  2. METHOTREXATE. [Concomitant]
     Active Substance: METHOTREXATE
  3. HYDROXYCHLOROQUINE [Suspect]
     Active Substance: HYDROXYCHLOROQUINE
     Dosage: 3 MONTHS 1 DAY, 400 MG DIE
     Route: 065
     Dates: start: 20150501, end: 20150801

REACTIONS (2)
  - Age-related macular degeneration [Unknown]
  - Drug intolerance [Unknown]
